FAERS Safety Report 6318522-5 (Version None)
Quarter: 2009Q3

REPORT INFORMATION
  Report Type: 
  Country: None (occurrence: None)
  Receive Date: 20090821
  Receipt Date: 20080604
  Transmission Date: 20100115
  Serious: No
  Sender: FDA-Public Use
  Company Number: US-JNJFOC-20090806821

PATIENT
  Sex: Female

DRUGS (2)
  1. INVEGA [Suspect]
     Route: 048
  2. INVEGA [Suspect]
     Indication: SCHIZOPHRENIA
     Route: 048

REACTIONS (1)
  - AMENORRHOEA [None]
